FAERS Safety Report 16555958 (Version 1)
Quarter: 2019Q3

REPORT INFORMATION
  Report Type: Spontaneous
  Country: US (occurrence: US)
  Receive Date: 20190710
  Receipt Date: 20190710
  Transmission Date: 20191004
  Serious: Yes (Other)
  Sender: FDA-Public Use
  Company Number: US-DSJP-DSU-2019-125908

PATIENT

DRUGS (1)
  1. BENICAR [Suspect]
     Active Substance: OLMESARTAN MEDOXOMIL
     Indication: HYPERTENSION
     Dosage: UNK, UNK
     Route: 048

REACTIONS (7)
  - Liver injury [Unknown]
  - Feeling abnormal [Unknown]
  - Renal injury [Unknown]
  - Pain [Unknown]
  - Rash [Unknown]
  - Abdominal pain upper [Unknown]
  - Cough [Unknown]
